FAERS Safety Report 19071186 (Version 1)
Quarter: 2021Q1

REPORT INFORMATION
  Report Type: Spontaneous
  Country: AU (occurrence: AU)
  Receive Date: 20210330
  Receipt Date: 20210330
  Transmission Date: 20210420
  Serious: Yes (Other)
  Sender: FDA-Public Use
  Company Number: AU-SUN PHARMACEUTICAL INDUSTRIES LTD-2021RR-288325

PATIENT
  Age: 65 Year
  Sex: Female
  Weight: 43 kg

DRUGS (2)
  1. NORADRENALINE [Suspect]
     Active Substance: NOREPINEPHRINE
     Indication: HYPOTENSION
     Dosage: UNK
     Route: 065
  2. ADRENALINE [Suspect]
     Active Substance: EPINEPHRINE
     Indication: HYPERTENSION
     Dosage: 25 MICROGRAM/DOSE
     Route: 065

REACTIONS (2)
  - Therapeutic product effect incomplete [Unknown]
  - Lactic acidosis [Not Recovered/Not Resolved]
